FAERS Safety Report 4576153-1 (Version None)
Quarter: 2005Q1

REPORT INFORMATION
  Report Type: 
  Country: None (occurrence: None)
  Receive Date: 20050204
  Receipt Date: 20050124
  Transmission Date: 20050727
  Serious: Yes (Hospitalization, Other)
  Sender: FDA-Public Use
  Company Number: 2005013926

PATIENT
  Age: 30 Year
  Sex: Female

DRUGS (6)
  1. LYRICA [Suspect]
     Indication: ILL-DEFINED DISORDER
     Dosage: ONCE (1800 MG), ORAL
     Route: 048
  2. XANOR SR            (ALPRAZOLAM) [Suspect]
     Indication: ILL-DEFINED DISORDER
     Dosage: ONCE (1800 MG), ORAL
     Route: 048
  3. LAMICTAL [Suspect]
     Indication: ILL-DEFINED DISORDER
     Dosage: ONCE (900 MG), ORAL
     Route: 048
  4. CARISOPRODOL [Suspect]
     Indication: ILL-DEFINED DISORDER
     Dosage: ONCE (1050 MG), ORAL
     Route: 048
  5. TRUXAL                (CHLORPROTHIXENE HYDROCHLORIDE) [Suspect]
     Indication: ILL-DEFINED DISORDER
     Dosage: ONCE (150 MG), ORAL
     Route: 048
  6. IMOVANE                 (ZOPICLONE) [Suspect]
     Indication: ILL-DEFINED DISORDER
     Dosage: ONCE (45 MG), ONCE

REACTIONS (8)
  - BALANCE DISORDER [None]
  - DIPLOPIA [None]
  - EPILEPSY [None]
  - EUPHORIC MOOD [None]
  - FEELING DRUNK [None]
  - MULTIPLE DRUG OVERDOSE [None]
  - PERSONALITY DISORDER [None]
  - SMOKER [None]
